FAERS Safety Report 18308377 (Version 1)
Quarter: 2020Q3

REPORT INFORMATION
  Report Type: Spontaneous
  Country: ZA (occurrence: ZA)
  Receive Date: 20200924
  Receipt Date: 20200924
  Transmission Date: 20201103
  Serious: Yes (Other)
  Sender: FDA-Public Use
  Company Number: ZA-FRESENIUS KABI-FK202009753

PATIENT
  Age: 18 Year
  Sex: Female

DRUGS (4)
  1. GLUCOSE (MANUFACTURER UNKNOWN) [Suspect]
     Active Substance: DEXTROSE
     Indication: HYPOTENSION
     Dosage: UNK
     Route: 065
  2. SODIUM LACTATE/POTASSIUM CHLORIDE/SODIUM CHLORIDE/MAGNESIUM CHLORIDE/CALCIUM CHLORIDE DIHYDRATE [Concomitant]
  3. INSULIN [Suspect]
     Active Substance: INSULIN NOS
     Indication: HYPOTENSION
  4. GLUCOSE 50% (MANUFACTURER UNKNOWN) [Suspect]
     Active Substance: DEXTROSE
     Indication: HYPOTENSION
     Dosage: UNK
     Route: 065

REACTIONS (1)
  - Hyponatraemia [Recovered/Resolved]
